FAERS Safety Report 6504045-7 (Version None)
Quarter: 2009Q4

REPORT INFORMATION
  Report Type: 
  Country: None (occurrence: None)
  Receive Date: 20091216
  Receipt Date: 20091216
  Transmission Date: 20100525
  Serious: No
  Sender: FDA-Public Use
  Company Number: None

PATIENT
  Age: 41 Year
  Sex: Male

DRUGS (1)
  1. NORTRIPTYLINE [Suspect]
     Indication: DEPRESSION
     Dosage: 25 MG AT BEDTIME PO
     Route: 048
     Dates: start: 20091204

REACTIONS (1)
  - ATRIOVENTRICULAR BLOCK [None]
